FAERS Safety Report 10971549 (Version 1)
Quarter: 2015Q1

REPORT INFORMATION
  Report Type: Spontaneous
  Country: US (occurrence: None)
  Receive Date: 20150330
  Receipt Date: 20150330
  Transmission Date: 20150721
  Serious: Yes (Other)
  Sender: FDA-Public Use
  Company Number: None

PATIENT
  Age: 12 Year
  Sex: Female
  Weight: 47.17 kg

DRUGS (12)
  1. PREDNISOLONE SODIUM PHOSPHATE. [Suspect]
     Active Substance: PREDNISOLONE SODIUM PHOSPHATE
     Indication: ADVERSE DRUG REACTION
     Dosage: TWO TEASPOONFULS
     Route: 048
     Dates: start: 20150327, end: 20150328
  2. CETIRIZINE HYDROCHLORIDE. [Concomitant]
     Active Substance: CETIRIZINE HYDROCHLORIDE
  3. GUAIFENESIN. [Concomitant]
     Active Substance: GUAIFENESIN
  4. CEFPROZIL. [Suspect]
     Active Substance: CEFPROZIL
     Indication: RASH
     Dosage: TWO TEASPOONFULS
     Route: 048
     Dates: start: 20150318, end: 20150326
  5. AFRIN [Concomitant]
     Active Substance: OXYMETAZOLINE
  6. STERILE SALINE NASAL MIST [Concomitant]
  7. CEFPROZIL. [Suspect]
     Active Substance: CEFPROZIL
     Indication: SINUS CONGESTION
     Dosage: TWO TEASPOONFULS
     Route: 048
     Dates: start: 20150318, end: 20150326
  8. CEFPROZIL. [Suspect]
     Active Substance: CEFPROZIL
     Indication: OROPHARYNGEAL PAIN
     Dosage: TWO TEASPOONFULS
     Route: 048
     Dates: start: 20150318, end: 20150326
  9. PREDNISOLONE SODIUM PHOSPHATE. [Suspect]
     Active Substance: PREDNISOLONE SODIUM PHOSPHATE
     Indication: INFLAMMATION
     Dosage: TWO TEASPOONFULS
     Route: 048
     Dates: start: 20150327, end: 20150328
  10. SODIUM CHLORIDE SOLUTION [Concomitant]
     Active Substance: SODIUM CHLORIDE
  11. CEFPROZIL. [Suspect]
     Active Substance: CEFPROZIL
     Indication: COUGH
     Dosage: TWO TEASPOONFULS
     Route: 048
     Dates: start: 20150318, end: 20150326
  12. PHENYLEPHRINE [Concomitant]
     Active Substance: PHENYLEPHRINE\PHENYLEPHRINE HYDROCHLORIDE

REACTIONS (17)
  - Lethargy [None]
  - Inflammation [None]
  - Cough [None]
  - Pain in extremity [None]
  - Oropharyngeal pain [None]
  - Nasal congestion [None]
  - Dehydration [None]
  - Fatigue [None]
  - Pharyngeal oedema [None]
  - Memory impairment [None]
  - Chest pain [None]
  - Muscular weakness [None]
  - Swelling face [None]
  - Confusional state [None]
  - Pneumonia [None]
  - Speech disorder [None]
  - Infectious mononucleosis [None]

NARRATIVE: CASE EVENT DATE: 20150326
